FAERS Safety Report 18562793 (Version 1)
Quarter: 2020Q4

REPORT INFORMATION
  Report Type: Spontaneous
  Country: FR (occurrence: FR)
  Receive Date: 20201201
  Receipt Date: 20201201
  Transmission Date: 20210114
  Serious: Yes (Life-Threatening, Hospitalization, Other)
  Sender: FDA-Public Use
  Company Number: FR-CELLTRION INC.-2020FR032801

PATIENT

DRUGS (12)
  1. ECULIZUMAB [Suspect]
     Active Substance: ECULIZUMAB
     Indication: THROMBOTIC THROMBOCYTOPENIC PURPURA
     Dosage: RESCUE THERAPY ON DAY 11
  2. PLASMA EXCHANGE [Suspect]
     Active Substance: ALBUMIN HUMAN
     Dosage: TWICE DAILY SESSIONS, CONTINUED UNTIL DAY 20 FROM ADMISSION (A TOTAL OF 41 PE SESSIONS PERFORMED)
  3. PREDNISONE. [Suspect]
     Active Substance: PREDNISONE
     Indication: THROMBOTIC THROMBOCYTOPENIC PURPURA
     Dosage: 1 MG/KG/DAY
  4. RITUXIMAB (UNKNOWN) [Suspect]
     Active Substance: RITUXIMAB
     Dosage: THIRD RTX INFUSION WAS DONE ON DAY 10
  5. RITUXIMAB (UNKNOWN) [Suspect]
     Active Substance: RITUXIMAB
     Dosage: DAY 19, FOURTH INFUSION
  6. PLASMA EXCHANGE [Suspect]
     Active Substance: ALBUMIN HUMAN
     Indication: THROMBOTIC THROMBOCYTOPENIC PURPURA
     Dosage: DAILY PE
  7. RITUXIMAB (UNKNOWN) [Suspect]
     Active Substance: RITUXIMAB
     Dosage: DAY 28, FIFTH INFUSION
  8. RITUXIMAB (UNKNOWN) [Suspect]
     Active Substance: RITUXIMAB
     Dosage: DAY 71, SIXTH INFUSION
  9. CABLIVI [CAPLACIZUMAB] [Concomitant]
     Indication: THROMBOTIC THROMBOCYTOPENIC PURPURA
     Dosage: 10 MG, FIRST INJECTION
     Route: 042
  10. RITUXIMAB (UNKNOWN) [Suspect]
     Active Substance: RITUXIMAB
     Indication: THROMBOTIC THROMBOCYTOPENIC PURPURA
     Dosage: 375 MG/M2, FIRST INFUSION ON DAY 1
  11. RITUXIMAB (UNKNOWN) [Suspect]
     Active Substance: RITUXIMAB
     Dosage: SECOND RTX INFUSION ON DAY 6
  12. CABLIVI [CAPLACIZUMAB] [Concomitant]
     Dosage: 10 MG, TWICE DAILY AFTER EACH PE SESSION (MAINTAINED FOR 128 DAYS UNTIL DAY 139 FROM INITIAL ADMISSI
     Route: 058

REACTIONS (5)
  - Off label use [Unknown]
  - Encephalopathy [Recovered/Resolved]
  - Thrombocytopenia [Recovered/Resolved]
  - Condition aggravated [Recovered/Resolved]
  - Thrombotic microangiopathy [Recovered/Resolved]
